FAERS Safety Report 8395574-2 (Version None)
Quarter: 2012Q2

REPORT INFORMATION
  Report Type: 
  Country: None (occurrence: None)
  Receive Date: 20120530
  Receipt Date: 20110913
  Transmission Date: 20120825
  Serious: No
  Sender: FDA-Public Use
  Company Number: US-GLAXOSMITHKLINE-A0944477A

PATIENT
  Age: 71 Year
  Sex: Female

DRUGS (16)
  1. AMLODIPINE BESYLATE [Concomitant]
  2. VITAMIN B-12 [Concomitant]
     Indication: SUPPLEMENTATION THERAPY
  3. HUMALOG [Concomitant]
  4. SPIRACTIN [Concomitant]
  5. SINGULAIR [Concomitant]
  6. ASPIRIN [Concomitant]
  7. PLAVIX [Concomitant]
  8. CARVEDILOL [Concomitant]
  9. THIOGUANINE [Concomitant]
  10. ISOSORBIDE DINITRATE [Concomitant]
  11. VENTOLIN [Suspect]
     Indication: CHRONIC OBSTRUCTIVE PULMONARY DISEASE
     Dosage: 2PUFF AS REQUIRED
     Route: 055
     Dates: start: 20080101
  12. LOSARTAN POTASSIUM [Concomitant]
  13. SIMVASTATIN [Concomitant]
  14. CLORAZEPATE DIPOTASSIUM [Concomitant]
  15. NITROGLYCERIN [Concomitant]
  16. SPIRIVA [Concomitant]

REACTIONS (3)
  - DRUG INEFFECTIVE [None]
  - DRUG ADMINISTRATION ERROR [None]
  - DYSPNOEA [None]
